FAERS Safety Report 11362487 (Version 2)
Quarter: 2015Q3

REPORT INFORMATION
  Report Type: Spontaneous
  Country: CL (occurrence: CL)
  Receive Date: 20150810
  Receipt Date: 20150828
  Transmission Date: 20151125
  Serious: Yes (Other)
  Sender: FDA-Public Use
  Company Number: CL-PFIZER INC-2015252724

PATIENT
  Age: 80 Year
  Sex: Female

DRUGS (1)
  1. CARDURA [Suspect]
     Active Substance: DOXAZOSIN MESYLATE
     Dosage: 4 MG, UNK
     Route: 048
     Dates: start: 1975

REACTIONS (2)
  - Renal failure [Recovered/Resolved]
  - Ureteric cancer [Recovered/Resolved]

NARRATIVE: CASE EVENT DATE: 2005
